FAERS Safety Report 6153849-1 (Version None)
Quarter: 2009Q2

REPORT INFORMATION
  Report Type: 
  Country: None (occurrence: None)
  Receive Date: 20090414
  Receipt Date: 20090401
  Transmission Date: 20091009
  Serious: Yes (Disabling)
  Sender: FDA-Public Use
  Company Number: FR-RANBAXY-2009RR-23254

PATIENT
  Sex: Male
  Weight: 13 kg

DRUGS (2)
  1. AMOXICILLINE RPG 250 MG POUDRE POUR SUSPENSION BUVABLE EN SACHET [Suspect]
     Dosage: UNK
     Dates: start: 20090109, end: 20090114
  2. ADVIL CHILD AND INFANT [Concomitant]
     Dosage: UNK
     Dates: end: 20090114

REACTIONS (1)
  - ANGIOEDEMA [None]
